FAERS Safety Report 5392073-7 (Version None)
Quarter: 2007Q3

REPORT INFORMATION
  Report Type: 
  Country: None (occurrence: None)
  Receive Date: 20070717
  Receipt Date: 20070717
  Transmission Date: 20080115
  Serious: Yes (Life-Threatening, Hospitalization)
  Sender: FDA-Public Use
  Company Number: None

PATIENT
  Sex: Male
  Weight: 65.7716 kg

DRUGS (1)
  1. CHANTIX [Suspect]
     Indication: SMOKING CESSATION THERAPY
     Dates: start: 20070430, end: 20070506

REACTIONS (22)
  - ABASIA [None]
  - ABNORMAL BEHAVIOUR [None]
  - AMNESIA [None]
  - CONFUSIONAL STATE [None]
  - CONVULSION [None]
  - CRYING [None]
  - DISORIENTATION [None]
  - FATIGUE [None]
  - FEAR [None]
  - FEELING ABNORMAL [None]
  - HALLUCINATIONS, MIXED [None]
  - IMPAIRED WORK ABILITY [None]
  - MALAISE [None]
  - MYDRIASIS [None]
  - NIGHTMARE [None]
  - PALLOR [None]
  - PARANOIA [None]
  - PSYCHOTIC DISORDER [None]
  - SPEECH DISORDER [None]
  - TOBACCO WITHDRAWAL SYMPTOMS [None]
  - VIRAL INFECTION [None]
  - VOMITING [None]
